FAERS Safety Report 21254163 (Version 6)
Quarter: 2023Q4

REPORT INFORMATION
  Report Type: Report from Study
  Country: US (occurrence: US)
  Receive Date: 20220825
  Receipt Date: 20231019
  Transmission Date: 20240110
  Serious: Yes (Other)
  Sender: FDA-Public Use
  Company Number: US-TAKEDA-US201931840

PATIENT
  Age: 40 Year
  Sex: Female

DRUGS (5)
  1. HUMAN IMMUNOGLOBULIN G [Suspect]
     Active Substance: HUMAN IMMUNOGLOBULIN G
     Indication: Primary immunodeficiency syndrome
     Dosage: UNK
     Route: 042
  2. HUMAN IMMUNOGLOBULIN G [Suspect]
     Active Substance: HUMAN IMMUNOGLOBULIN G
     Dosage: 45 GRAM
     Route: 042
  3. HYQVIA [Suspect]
     Active Substance: HUMAN IMMUNOGLOBULIN G\HYALURONIDASE (HUMAN RECOMBINANT)
     Indication: Primary immunodeficiency syndrome
     Dosage: UNK
     Route: 065
  4. CUVITRU [Suspect]
     Active Substance: HUMAN IMMUNOGLOBULIN G
     Indication: Primary immunodeficiency syndrome
     Dosage: 24 GRAM, 2/WEEK
     Route: 065
  5. CUVITRU [Suspect]
     Active Substance: HUMAN IMMUNOGLOBULIN G
     Indication: Immunodeficiency

REACTIONS (17)
  - Autoimmune disorder [Unknown]
  - Poor venous access [Unknown]
  - Asthenia [Recovering/Resolving]
  - Infusion site swelling [Unknown]
  - Infusion site pain [Unknown]
  - Scar [Unknown]
  - Gastrointestinal bacterial overgrowth [Unknown]
  - Intestinal barrier dysfunction [Unknown]
  - Eating disorder [Unknown]
  - Illness [Unknown]
  - Infusion site scar [Unknown]
  - Malnutrition [Unknown]
  - Infusion site bruising [Unknown]
  - Infusion site discomfort [Unknown]
  - Infusion site discharge [Unknown]
  - Fatigue [Unknown]
  - Device difficult to use [Unknown]

NARRATIVE: CASE EVENT DATE: 20220304
